FAERS Safety Report 5647057-8 (Version None)
Quarter: 2008Q1

REPORT INFORMATION
  Report Type: 
  Country: None (occurrence: None)
  Receive Date: 20080303
  Receipt Date: 20080222
  Transmission Date: 20080703
  Serious: Yes (Hospitalization, Other)
  Sender: FDA-Public Use
  Company Number: GB-JNJFOC-20080205559

PATIENT
  Sex: Male
  Weight: 64 kg

DRUGS (6)
  1. REMICADE [Suspect]
     Indication: RHEUMATOID ARTHRITIS
     Route: 042
  2. CLOPIDOGREL [Concomitant]
  3. CO-DYDRAMOL [Concomitant]
  4. MOBIC [Concomitant]
  5. NEXIUM [Concomitant]
  6. PRAVASTATIN [Concomitant]

REACTIONS (3)
  - ARTHRITIS [None]
  - INFECTION [None]
  - MALAISE [None]
